FAERS Safety Report 4767266-X (Version None)
Quarter: 2005Q3

REPORT INFORMATION
  Report Type: 
  Country: None (occurrence: None)
  Receive Date: 20050913
  Receipt Date: 20050804
  Transmission Date: 20060218
  Serious: Yes (Other)
  Sender: FDA-Public Use
  Company Number: 2005UW11998

PATIENT
  Age: 3937 Day
  Sex: Male
  Weight: 58 kg

DRUGS (6)
  1. QUETIAPINE FUMARATE [Suspect]
     Indication: BIPOLAR I DISORDER
     Route: 048
     Dates: start: 20050617
  2. QUETIAPINE FUMARATE [Suspect]
     Route: 048
     Dates: start: 20050622, end: 20050623
  3. QUETIAPINE FUMARATE [Suspect]
     Route: 048
     Dates: start: 20050623, end: 20050713
  4. QUETIAPINE FUMARATE [Suspect]
     Route: 048
     Dates: start: 20050714, end: 20050803
  5. QUETIAPINE FUMARATE [Suspect]
     Route: 048
     Dates: start: 20050804, end: 20050804
  6. CONCERTA [Concomitant]
     Indication: ATTENTION DEFICIT/HYPERACTIVITY DISORDER
     Route: 048
     Dates: start: 20050602

REACTIONS (2)
  - LEUKOPENIA [None]
  - NEUTROPENIA [None]
